FAERS Safety Report 7435887-1 (Version None)
Quarter: 2011Q2

REPORT INFORMATION
  Report Type: 
  Country: None (occurrence: None)
  Receive Date: 20110425
  Receipt Date: 20110419
  Transmission Date: 20111010
  Serious: Yes (Death)
  Sender: FDA-Public Use
  Company Number: US-ASTRAZENECA-2010SE43049

PATIENT
  Age: 61 Year
  Sex: Female
  Weight: 54.4 kg

DRUGS (18)
  1. SPIRIVA [Concomitant]
     Dosage: QD
     Dates: start: 20080501, end: 20081023
  2. NICOTEN PATCH [Concomitant]
     Dates: start: 20080501
  3. PRAVASTATIN [Concomitant]
     Dates: start: 20080724
  4. ATENOLOL [Concomitant]
     Dosage: DAILY
     Dates: start: 20090821
  5. O2 [Concomitant]
     Dates: start: 20080501
  6. SYMBICORT [Suspect]
     Indication: CHRONIC OBSTRUCTIVE PULMONARY DISEASE
     Dosage: 160/4.5 UG 2 PUFFS TWICE DAILY
     Route: 055
     Dates: start: 20080521
  7. EXFORGE [Concomitant]
     Dosage: 5/160
     Dates: start: 20080407
  8. LORTAB [Concomitant]
     Dosage: PRN
     Dates: start: 20080407
  9. HYTRIN [Concomitant]
     Dates: start: 20090827
  10. PROVENTIL NEBULES [Concomitant]
     Dosage: PRN
  11. HYTRIN [Concomitant]
     Dates: start: 20080407, end: 20080527
  12. ASMANEX TWISTHALER [Concomitant]
     Dosage: BID
     Dates: start: 20080501, end: 20080501
  13. BLOOD PRESSURE MEDICATION [Concomitant]
  14. SYMBICORT [Suspect]
     Indication: EMPHYSEMA
     Dosage: 160/4.5 UG 2 PUFFS TWICE DAILY
     Route: 055
     Dates: start: 20080521
  15. SPIRIVA [Concomitant]
     Dosage: QD
     Dates: start: 20091008
  16. ALBUTEROL [Concomitant]
     Dates: start: 20080407
  17. BROVANA [Concomitant]
     Dosage: TWO TIMES A DAY
     Dates: start: 20090521
  18. TERAZOSIN [Concomitant]
     Dates: start: 20080521

REACTIONS (9)
  - HYPOXIA [None]
  - WHEEZING [None]
  - HEADACHE [None]
  - FATIGUE [None]
  - CHEST DISCOMFORT [None]
  - DYSPNOEA [None]
  - COUGH [None]
  - DEATH [None]
  - CONFUSIONAL STATE [None]
